FAERS Safety Report 10357245 (Version 1)
Quarter: 2014Q3

REPORT INFORMATION
  Report Type: Spontaneous
  Country: FR (occurrence: FR)
  Receive Date: 20140801
  Receipt Date: 20140801
  Transmission Date: 20150326
  Serious: Yes (Hospitalization)
  Sender: FDA-Public Use
  Company Number: FR-VERTEX PHARMACEUTICALS INC-2014-003335

PATIENT
  Age: 69 Year
  Sex: Female
  Weight: 52.4 kg

DRUGS (1)
  1. INCIVO [Suspect]
     Active Substance: TELAPREVIR
     Indication: HEPATITIS C
     Dosage: UNK
     Route: 048

REACTIONS (3)
  - Hepatic cirrhosis [Recovered/Resolved]
  - Malnutrition [Recovered/Resolved]
  - Pyrexia [Recovered/Resolved]

NARRATIVE: CASE EVENT DATE: 20121203
